FAERS Safety Report 6571298-9 (Version None)
Quarter: 2010Q1

REPORT INFORMATION
  Report Type: 
  Country: None (occurrence: None)
  Receive Date: 20100129
  Receipt Date: 20100117
  Transmission Date: 20100710
  Serious: Yes (Hospitalization, Other)
  Sender: FDA-Public Use
  Company Number: 1000009515

PATIENT
  Age: 26 Year
  Sex: Female

DRUGS (4)
  1. CITALOPRAM HYDROBROMIDE [Suspect]
     Dosage: (15 DOSAGE FORMS, ONCE), ORAL
     Route: 048
     Dates: start: 20091009, end: 20091009
  2. BENZODIAZEPINE [Suspect]
     Dosage: (ONCE), ORAL
     Route: 048
     Dates: start: 20091009, end: 20091009
  3. NEUROCIL [Suspect]
     Dosage: (ONCE), ORAL
     Route: 048
     Dates: start: 20091009, end: 20091009
  4. ALCOHOL [Suspect]
     Dosage: (ONCE), ORAL
     Route: 048
     Dates: start: 20091009, end: 20091009

REACTIONS (6)
  - DISORIENTATION [None]
  - DRUG ABUSE [None]
  - FATIGUE [None]
  - INTENTIONAL OVERDOSE [None]
  - LOSS OF CONSCIOUSNESS [None]
  - POISONING [None]
